FAERS Safety Report 8405890-3 (Version None)
Quarter: 2012Q2

REPORT INFORMATION
  Report Type: 
  Country: None (occurrence: None)
  Receive Date: 20120529
  Receipt Date: 20060206
  Transmission Date: 20120825
  Serious: Yes (Hospitalization)
  Sender: FDA-Public Use
  Company Number: 15691-USA-06-0392

PATIENT
  Age: 70 Year
  Sex: Male

DRUGS (6)
  1. SPIRONOLACTONE [Concomitant]
  2. ENALAPRIL MALEATE [Concomitant]
  3. ASPARCAM (KALIUM ASPARTATE, MAGNESIUM ASPARTATE) [Concomitant]
  4. TOLVAPTAN (TOLVAPTAN(V4.1)) 30MG [Suspect]
     Indication: CARDIAC FAILURE CONGESTIVE
     Dosage: 30 MG, QD, ORAL
     Route: 048
     Dates: start: 20050210, end: 20060204
  5. TOLVAPTAN (TOLVAPTAN(V4.1)) 30MG [Suspect]
     Indication: CARDIAC FAILURE CONGESTIVE
     Dosage: 30 MG, QD, ORAL
     Route: 048
     Dates: start: 20060211
  6. ATENOLOL [Concomitant]

REACTIONS (5)
  - PULMONARY HYPERTENSION [None]
  - VENTRICULAR HYPOKINESIA [None]
  - DILATATION VENTRICULAR [None]
  - ELECTROCARDIOGRAM ST-T CHANGE [None]
  - HYPOKALAEMIA [None]
